FAERS Safety Report 11803791 (Version 1)
Quarter: 2015Q4

REPORT INFORMATION
  Report Type: Report from Study
  Country: BR (occurrence: BR)
  Receive Date: 20151204
  Receipt Date: 20151204
  Transmission Date: 20160305
  Serious: Yes (Hospitalization, Disabling, Other)
  Sender: FDA-Public Use
  Company Number: BR-ABBVIE-15K-020-1511273-00

PATIENT
  Sex: Female
  Weight: 70 kg

DRUGS (4)
  1. METHOTREXATE [Concomitant]
     Active Substance: METHOTREXATE
     Indication: RHEUMATOID ARTHRITIS
     Route: 048
  2. CALCIUM CARBONATE. [Concomitant]
     Active Substance: CALCIUM CARBONATE
     Indication: BONE DISORDER
     Route: 048
     Dates: start: 2012
  3. PREDNISOLONE. [Concomitant]
     Active Substance: PREDNISOLONE
     Indication: RHEUMATOID ARTHRITIS
     Route: 048
     Dates: start: 1998
  4. HUMIRA [Suspect]
     Active Substance: ADALIMUMAB
     Indication: RHEUMATOID ARTHRITIS
     Route: 058
     Dates: start: 20130101

REACTIONS (10)
  - Memory impairment [Unknown]
  - Hospitalisation [Recovered/Resolved]
  - Sciatic nerve neuropathy [Recovering/Resolving]
  - Joint crepitation [Unknown]
  - Intervertebral disc protrusion [Recovering/Resolving]
  - Abasia [Recovered/Resolved]
  - Osteoarthritis [Unknown]
  - Spondylitis [Recovering/Resolving]
  - Back pain [Unknown]
  - Arthralgia [Unknown]

NARRATIVE: CASE EVENT DATE: 2013
